FAERS Safety Report 24054242 (Version 1)
Quarter: 2024Q3

REPORT INFORMATION
  Report Type: Spontaneous
  Country: US (occurrence: US)
  Receive Date: 20240705
  Receipt Date: 20240705
  Transmission Date: 20241017
  Serious: No
  Sender: SANOFI AVENTIS
  Company Number: US-SANOFI-02119130

PATIENT
  Age: 82 Year
  Sex: Male

DRUGS (1)
  1. LANTUS SOLOSTAR [Suspect]
     Active Substance: INSULIN GLARGINE
     Indication: Type 2 diabetes mellitus
     Dosage: 24 IU, BID
     Route: 058
     Dates: start: 202401

REACTIONS (2)
  - Hypoacusis [Unknown]
  - Off label use [Unknown]

NARRATIVE: CASE EVENT DATE: 20240101
